FAERS Safety Report 6591286-6 (Version None)
Quarter: 2010Q1

REPORT INFORMATION
  Report Type: 
  Country: None (occurrence: None)
  Receive Date: 20100219
  Receipt Date: 20100210
  Transmission Date: 20100710
  Serious: Yes (Hospitalization, Other)
  Sender: FDA-Public Use
  Company Number: US-PFIZER INC-2010011139

PATIENT
  Sex: Male
  Weight: 78.471 kg

DRUGS (2)
  1. CHANTIX [Suspect]
     Indication: SMOKING CESSATION THERAPY
     Dosage: UNK
     Dates: start: 20090501
  2. RESTORIL [Concomitant]
     Indication: SLEEP DISORDER

REACTIONS (4)
  - DEPRESSION [None]
  - OVERDOSE [None]
  - SUICIDAL BEHAVIOUR [None]
  - SUICIDAL IDEATION [None]
